FAERS Safety Report 4597650-9 (Version None)
Quarter: 2005Q1

REPORT INFORMATION
  Report Type: 
  Country: None (occurrence: None)
  Receive Date: 20050303
  Receipt Date: 20050127
  Transmission Date: 20050727
  Serious: Yes (Disabling)
  Sender: FDA-Public Use
  Company Number: JP-GLAXOSMITHKLINE-B0369303A

PATIENT
  Age: 65 Year
  Sex: Female
  Weight: 40.1 kg

DRUGS (3)
  1. ZOVIRAX [Suspect]
     Indication: ENCEPHALITIS HERPES
     Dosage: 250MG PER DAY
     Route: 042
     Dates: start: 20050119, end: 20050121
  2. FUNGUARD [Suspect]
     Dosage: 150MG PER DAY
     Route: 042
     Dates: start: 20050118, end: 20050131
  3. PANSPORIN [Suspect]
     Dosage: 1G PER DAY
     Route: 042
     Dates: start: 20050118, end: 20050124

REACTIONS (4)
  - DEPRESSED LEVEL OF CONSCIOUSNESS [None]
  - DIALYSIS [None]
  - MYDRIASIS [None]
  - SOMNOLENCE [None]
